FAERS Safety Report 7641441-9 (Version None)
Quarter: 2011Q3

REPORT INFORMATION
  Report Type: 
  Country: None (occurrence: None)
  Receive Date: 20110728
  Receipt Date: 20110404
  Transmission Date: 20111222
  Serious: No
  Sender: FDA-Public Use
  Company Number: US-MUTUAL PHARMACEUTICAL COMPANY, INC.-CLHC20110011

PATIENT
  Age: 81 Year
  Sex: Male

DRUGS (2)
  1. COLCHICINE [Suspect]
     Indication: GOUT
     Dates: start: 20090101, end: 20110331
  2. SYNTHROID [Concomitant]
     Indication: HYPOTHYROIDISM

REACTIONS (2)
  - MUSCLE ATROPHY [None]
  - NEUROPATHY PERIPHERAL [None]
